FAERS Safety Report 6606637-3 (Version None)
Quarter: 2010Q1

REPORT INFORMATION
  Report Type: 
  Country: None (occurrence: None)
  Receive Date: 20100226
  Receipt Date: 20100218
  Transmission Date: 20100710
  Serious: Yes (Death)
  Sender: FDA-Public Use
  Company Number: US-JNJFOC-20100208131

PATIENT
  Sex: Male

DRUGS (6)
  1. TYLENOL-500 [Suspect]
     Route: 065
  2. TYLENOL-500 [Suspect]
     Indication: DRUG USE FOR UNKNOWN INDICATION
     Route: 065
  3. ROTARIX [Suspect]
     Indication: PROPHYLAXIS
     Route: 065
  4. PEDIARIX VACCINE [Suspect]
     Indication: PROPHYLAXIS
     Route: 065
  5. PREVNAR VACCINE [Suspect]
     Indication: PROPHYLAXIS
     Route: 065
  6. HAEMOPHILUS INFLUENZA TYPE B VACCINE [Suspect]
     Indication: PROPHYLAXIS
     Route: 065

REACTIONS (1)
  - DEATH [None]
